FAERS Safety Report 17026501 (Version 1)
Quarter: 2019Q4

REPORT INFORMATION
  Report Type: Spontaneous
  Country: SE (occurrence: SE)
  Receive Date: 20191113
  Receipt Date: 20191113
  Transmission Date: 20200122
  Serious: Yes (Other)
  Sender: FDA-Public Use
  Company Number: SE-MYLANLABS-2019M1107554

PATIENT
  Age: 68 Year
  Sex: Female
  Weight: 90 kg

DRUGS (3)
  1. LEHYDAN [Concomitant]
     Active Substance: PHENYTOIN
     Dosage: UNK (MEDICINERING UNDER NEDTRAPPNING)
  2. CIPROFLOXACIN. [Suspect]
     Active Substance: CIPROFLOXACIN
     Indication: NEUTROPHIL COUNT DECREASED
     Dosage: 500 MILLIGRAM (STYRKA 500 MG)
     Route: 065
     Dates: start: 20190522
  3. EPANUTIN                           /00017402/ [Concomitant]
     Dosage: UNK (HAR BEHANDLATS MED EPANUTIN I 43 ?R ^UTAN BIVERKNINGAR, H?LLER P? ATT TRAPPA NER DEN)

REACTIONS (5)
  - Rash [Recovering/Resolving]
  - Rash pruritic [Recovering/Resolving]
  - Dizziness [Recovering/Resolving]
  - Visual impairment [Recovering/Resolving]
  - Derealisation [Recovering/Resolving]

NARRATIVE: CASE EVENT DATE: 201905
